FAERS Safety Report 7647473-9 (Version None)
Quarter: 2011Q3

REPORT INFORMATION
  Report Type: 
  Country: None (occurrence: None)
  Receive Date: 20110801
  Receipt Date: 20110712
  Transmission Date: 20111222
  Serious: Yes (Death)
  Sender: FDA-Public Use
  Company Number: US-GLAXOSMITHKLINE-A0833965A

PATIENT
  Age: 57 Year
  Sex: Male

DRUGS (1)
  1. AVANDIA [Suspect]
     Indication: TYPE 2 DIABETES MELLITUS
     Dosage: 4MG UNKNOWN
     Route: 048
     Dates: end: 20050411

REACTIONS (5)
  - ARTHRALGIA [None]
  - NEUROPATHY PERIPHERAL [None]
  - DEATH [None]
  - MYOCARDIAL INFARCTION [None]
  - PAIN IN EXTREMITY [None]
